FAERS Safety Report 18884998 (Version 1)
Quarter: 2021Q1

REPORT INFORMATION
  Report Type: Spontaneous
  Country: US (occurrence: US)
  Receive Date: 20210212
  Receipt Date: 20210212
  Transmission Date: 20210420
  Serious: No
  Sender: FDA-Public Use
  Company Number: None

PATIENT
  Sex: Male

DRUGS (2)
  1. TACROLIMUS. [Suspect]
     Active Substance: TACROLIMUS
     Indication: LUNG TRANSPLANT
     Dosage: ?          OTHER FREQUENCY:1MG AM 0.5MG PM;?
     Route: 048
     Dates: start: 20200528
  2. TOBRAMYCIN. [Suspect]
     Active Substance: TOBRAMYCIN

REACTIONS (1)
  - Adverse drug reaction [None]
